FAERS Safety Report 26074841 (Version 1)
Quarter: 2025Q4

REPORT INFORMATION
  Report Type: Spontaneous
  Country: EU (occurrence: EU)
  Receive Date: 20251121
  Receipt Date: 20251121
  Transmission Date: 20260117
  Serious: Yes (Hospitalization)
  Sender: RANBAXY
  Company Number: EU-AFSSAPS-NT2025000804

PATIENT
  Age: 12 Year
  Sex: Female
  Weight: 50.5 kg

DRUGS (1)
  1. ACETAMINOPHEN [Suspect]
     Active Substance: ACETAMINOPHEN
     Indication: Toxicity to various agents
     Dosage: 16 GRAM, 16 CAPSULES OF 1 G, UNK
     Route: 048
     Dates: start: 20250721, end: 20250721

REACTIONS (5)
  - Toxicity to various agents [Recovered/Resolved]
  - Abdominal pain [Recovering/Resolving]
  - Nausea [Recovering/Resolving]
  - Vomiting [Recovering/Resolving]
  - Respiratory alkalosis [Recovering/Resolving]

NARRATIVE: CASE EVENT DATE: 20250721
